FAERS Safety Report 24648799 (Version 1)
Quarter: 2024Q4

REPORT INFORMATION
  Report Type: Spontaneous
  Country: US (occurrence: US)
  Receive Date: 20241121
  Receipt Date: 20241121
  Transmission Date: 20250115
  Serious: No
  Sender: ALVOGEN
  Company Number: US-ALVOGEN-2024094901

PATIENT
  Sex: Female

DRUGS (1)
  1. TERIPARATIDE [Suspect]
     Active Substance: TERIPARATIDE
     Indication: Osteogenesis imperfecta
     Dosage: STRENGTH: 250 MCG/ML
     Route: 058
     Dates: start: 202311

REACTIONS (2)
  - Blood calcium increased [Not Recovered/Not Resolved]
  - Product use in unapproved indication [Unknown]
